FAERS Safety Report 18886115 (Version 1)
Quarter: 2021Q1

REPORT INFORMATION
  Report Type: Spontaneous
  Country: US (occurrence: US)
  Receive Date: 20210212
  Receipt Date: 20210212
  Transmission Date: 20210420
  Serious: Yes (Other)
  Sender: FDA-Public Use
  Company Number: US-PFIZER INC-2021122628

PATIENT
  Age: 38 Year
  Sex: Female

DRUGS (5)
  1. ALUMINUM HYDROXIDE GEL [Concomitant]
     Active Substance: ALGELDRATE
  2. FERROUS GLUCONATE [Concomitant]
     Active Substance: FERROUS GLUCONATE
  3. MULTIPLE VITAMINS [Concomitant]
     Active Substance: VITAMINS
  4. FOLIC ACID. [Concomitant]
     Active Substance: FOLIC ACID
  5. INDERAL [Suspect]
     Active Substance: PROPRANOLOL HYDROCHLORIDE
     Indication: HYPERTENSION
     Dosage: 10 MG, 4X/DAY

REACTIONS (1)
  - Serum sickness-like reaction [Recovered/Resolved]
